FAERS Safety Report 4580070-0 (Version None)
Quarter: 2005Q1

REPORT INFORMATION
  Report Type: 
  Country: None (occurrence: None)
  Receive Date: 20050127
  Receipt Date: 20040927
  Transmission Date: 20050727
  Serious: No
  Sender: FDA-Public Use
  Company Number: USA040979452

PATIENT
  Age: 52 Year
  Sex: Female
  Weight: 95 kg

DRUGS (12)
  1. STRATTERA [Suspect]
     Indication: ATTENTION DEFICIT/HYPERACTIVITY DISORDER
     Dosage: 40 MG DAY
     Dates: start: 20040914, end: 20040918
  2. PAXIL CR [Concomitant]
  3. LEXAPRO [Concomitant]
  4. ESTROPIPATE [Concomitant]
  5. ALLEGRA [Concomitant]
  6. FLONASE [Concomitant]
  7. AMBIEN [Concomitant]
  8. PLAQUENIL [Concomitant]
  9. ZANAFLEX [Concomitant]
  10. MOBIDIN (MAGNESIUM SALICYLATE) [Concomitant]
  11. TEGASEROD [Concomitant]
  12. MULTI-VITAMIN [Concomitant]

REACTIONS (7)
  - ABDOMINAL DISTENSION [None]
  - DIZZINESS [None]
  - HYPERHIDROSIS [None]
  - HYPOAESTHESIA [None]
  - INFLUENZA LIKE ILLNESS [None]
  - NAUSEA [None]
  - PRURITUS [None]
